FAERS Safety Report 25758617 (Version 1)
Quarter: 2025Q3

REPORT INFORMATION
  Report Type: Spontaneous
  Country: US (occurrence: US)
  Receive Date: 20250904
  Receipt Date: 20250904
  Transmission Date: 20251021
  Serious: Yes (Hospitalization, Other)
  Sender: COOPERSURGICAL
  Company Number: US-COOPERSURGICAL, INC.-2025CPS006330

PATIENT
  Age: 24 Year
  Sex: Female
  Weight: 68.027 kg

DRUGS (1)
  1. PARAGARD T 380A [Suspect]
     Active Substance: COPPER
     Indication: Contraception
     Route: 015
     Dates: start: 20090624

REACTIONS (28)
  - Ovarian abscess [Unknown]
  - Pelvic abscess [Unknown]
  - Oophorectomy [Recovered/Resolved]
  - Ascites [Unknown]
  - Peritonitis [Unknown]
  - Infectious pleural effusion [Unknown]
  - Sepsis [Unknown]
  - Reproductive complication associated with device [Unknown]
  - Abortion spontaneous [Recovered/Resolved]
  - Ovarian cyst [Unknown]
  - Kidney infection [Unknown]
  - Device breakage [Not Recovered/Not Resolved]
  - Foreign body in reproductive tract [Not Recovered/Not Resolved]
  - Complication of device removal [Not Recovered/Not Resolved]
  - Uterine perforation [Not Recovered/Not Resolved]
  - Device dislocation [Not Recovered/Not Resolved]
  - Cystitis [Unknown]
  - Cervicitis [Unknown]
  - Procedural haemorrhage [Recovered/Resolved]
  - Emotional distress [Not Recovered/Not Resolved]
  - Procedural pain [Recovered/Resolved]
  - Fear [Not Recovered/Not Resolved]
  - Urinary tract infection [Unknown]
  - Muscle spasms [Recovered/Resolved]
  - Pain [Recovered/Resolved]
  - Dyspareunia [Recovered/Resolved]
  - Back pain [Unknown]
  - Device expulsion [Recovered/Resolved]

NARRATIVE: CASE EVENT DATE: 20131110
